FAERS Safety Report 5377846-9 (Version None)
Quarter: 2007Q2

REPORT INFORMATION
  Report Type: 
  Country: None (occurrence: None)
  Receive Date: 20070629
  Receipt Date: 20070625
  Transmission Date: 20071010
  Serious: Yes (Life-Threatening)
  Sender: FDA-Public Use
  Company Number: 2006-149537-NL

PATIENT
  Sex: Female

DRUGS (1)
  1. MIRTAZAPINE [Suspect]
     Indication: DEPRESSION
     Dosage: 15 MG QD, TRANSPLACENTAL
     Route: 064
     Dates: start: 20050404, end: 20060801

REACTIONS (5)
  - CAESAREAN SECTION [None]
  - DRUG EXPOSURE DURING PREGNANCY [None]
  - FAILED FORCEPS DELIVERY [None]
  - HYPONATRAEMIA [None]
  - PNEUMOTHORAX [None]
